FAERS Safety Report 4757244-9 (Version None)
Quarter: 2005Q3

REPORT INFORMATION
  Report Type: 
  Country: None (occurrence: None)
  Receive Date: 20050830
  Receipt Date: 20050817
  Transmission Date: 20060218
  Serious: Yes (Death, Life-Threatening, Hospitalization)
  Sender: FDA-Public Use
  Company Number: 13291

PATIENT
  Age: 9 Year
  Sex: Male

DRUGS (4)
  1. CLOFARABINE [Suspect]
     Indication: ACUTE LYMPHOCYTIC LEUKAEMIA
     Dosage: 62 MG QD X 5 IV
     Route: 042
     Dates: start: 20040323, end: 20040327
  2. AMPHOTERICIN B [Concomitant]
  3. ALBUMIN (HUMAN) [Concomitant]
  4. CEFEPIME [Concomitant]

REACTIONS (15)
  - ABDOMINAL DISTENSION [None]
  - DIALYSIS [None]
  - DISSEMINATED INTRAVASCULAR COAGULATION [None]
  - FLUID OVERLOAD [None]
  - HYPOTENSION [None]
  - INFECTION MASKED [None]
  - MULTI-ORGAN FAILURE [None]
  - NEUTROPENIA [None]
  - OLIGURIA [None]
  - PYREXIA [None]
  - RASH PAPULAR [None]
  - RENAL FAILURE [None]
  - RESPIRATORY FAILURE [None]
  - STAPHYLOCOCCAL SEPSIS [None]
  - VENOOCCLUSIVE LIVER DISEASE [None]
